FAERS Safety Report 19597864 (Version 1)
Quarter: 2021Q3

REPORT INFORMATION
  Report Type: Spontaneous
  Country: US (occurrence: US)
  Receive Date: 20210722
  Receipt Date: 20210722
  Transmission Date: 20211014
  Serious: Yes (Hospitalization)
  Sender: FDA-Public Use
  Company Number: None

PATIENT
  Age: 67 Year
  Sex: Female

DRUGS (2)
  1. DOFETILIDE. [Suspect]
     Active Substance: DOFETILIDE
     Indication: ATRIAL FIBRILLATION
     Route: 048
     Dates: start: 20201116
  2. NONE LISTED [Concomitant]

REACTIONS (3)
  - Oxygen saturation decreased [None]
  - Therapy interrupted [None]
  - Atrial fibrillation [None]

NARRATIVE: CASE EVENT DATE: 20210630
